FAERS Safety Report 24031076 (Version 1)
Quarter: 2024Q2

REPORT INFORMATION
  Report Type: Report from Study
  Country: US (occurrence: US)
  Receive Date: 20240628
  Receipt Date: 20240628
  Transmission Date: 20240715
  Serious: Yes (Death)
  Sender: FDA-Public Use
  Company Number: US-APELLIS-2024-APL-0000369

PATIENT

DRUGS (1)
  1. PEGCETACOPLAN [Suspect]
     Active Substance: PEGCETACOPLAN
     Indication: Product used for unknown indication
     Dosage: INJECT 15 MG INTRAVITREALLY ONCE EVERY 28 DAYS
     Route: 031

REACTIONS (1)
  - Death [Fatal]
